FAERS Safety Report 6016397-5 (Version None)
Quarter: 2008Q4

REPORT INFORMATION
  Report Type: 
  Country: None (occurrence: None)
  Receive Date: 20081218
  Receipt Date: 20081205
  Transmission Date: 20090506
  Serious: Yes (Hospitalization)
  Sender: FDA-Public Use
  Company Number: GXKR2008KR11655

PATIENT
  Age: 19 Year
  Sex: Female

DRUGS (4)
  1. RIFAMPICIN [Suspect]
     Indication: LYMPH NODE TUBERCULOSIS
  2. ISONIAZID [Suspect]
     Indication: LYMPH NODE TUBERCULOSIS
  3. ETHAMBUTOL HYDROCHLORIDE [Suspect]
     Indication: LYMPH NODE TUBERCULOSIS
  4. PYRAZINAMIDE [Suspect]
     Indication: LYMPH NODE TUBERCULOSIS

REACTIONS (5)
  - LYMPHADENOPATHY [None]
  - NECROSIS [None]
  - NO THERAPEUTIC RESPONSE [None]
  - OBSTRUCTIVE AIRWAYS DISORDER [None]
  - PARADOXICAL DRUG REACTION [None]
